FAERS Safety Report 26098738 (Version 1)
Quarter: 2025Q4

REPORT INFORMATION
  Report Type: Spontaneous
  Country: EU (occurrence: EU)
  Receive Date: 20251127
  Receipt Date: 20251127
  Transmission Date: 20260117
  Serious: No
  Sender: ALKEM
  Company Number: EU-ALKEM LABORATORIES LIMITED-DE-ALKEM-2025-03218

PATIENT
  Age: 58 Year
  Sex: Male

DRUGS (2)
  1. MYCOPHENOLATE MOFETIL [Suspect]
     Active Substance: MYCOPHENOLATE MOFETIL
     Indication: Myasthenia gravis
     Dosage: 250 MILLIGRAM
     Route: 065
     Dates: end: 20250312
  2. MYCOPHENOLATE MOFETIL [Suspect]
     Active Substance: MYCOPHENOLATE MOFETIL
     Dosage: 1000 MILLIGRAM
     Route: 065
     Dates: end: 20250312

REACTIONS (4)
  - Lactose intolerance [Recovering/Resolving]
  - Fructose intolerance [Recovering/Resolving]
  - Drug intolerance [Unknown]
  - Diarrhoea [Recovering/Resolving]
